FAERS Safety Report 19394474 (Version 1)
Quarter: 2021Q2

REPORT INFORMATION
  Report Type: Report from Study
  Country: NP (occurrence: NP)
  Receive Date: 20210609
  Receipt Date: 20210609
  Transmission Date: 20210717
  Serious: Yes (Hospitalization, Other)
  Sender: FDA-Public Use
  Company Number: PHHY2017NP148942

PATIENT
  Age: 53 Year
  Sex: Female

DRUGS (1)
  1. GLIVEC [Suspect]
     Active Substance: IMATINIB MESYLATE
     Indication: CHRONIC MYELOID LEUKAEMIA
     Dosage: 300 MG (3 X 100 MG)
     Route: 065

REACTIONS (3)
  - Syncope [Unknown]
  - SARS-CoV-2 test positive [Unknown]
  - Somnolence [Unknown]

NARRATIVE: CASE EVENT DATE: 20210521
